FAERS Safety Report 24058104 (Version 3)
Quarter: 2025Q1

REPORT INFORMATION
  Report Type: Report from Study
  Country: JP (occurrence: JP)
  Receive Date: 20240707
  Receipt Date: 20250127
  Transmission Date: 20250408
  Serious: Yes (Death, Life-Threatening, Hospitalization, Other)
  Sender: PFIZER
  Company Number: JP-PFIZER INC-PV202400077231

PATIENT
  Age: 80 Year
  Sex: Male
  Weight: 68.6 kg

DRUGS (31)
  1. ELRANATAMAB [Suspect]
     Active Substance: ELRANATAMAB
     Indication: Plasma cell myeloma refractory
     Dosage: 12 MG, 1X/DAY
     Route: 058
     Dates: start: 20240610, end: 20240610
  2. ELRANATAMAB [Suspect]
     Active Substance: ELRANATAMAB
     Dosage: 32 MG, 1X/DAY
     Route: 058
     Dates: start: 20240613, end: 20240613
  3. ELRANATAMAB [Suspect]
     Active Substance: ELRANATAMAB
     Dosage: 76 MG, 1X/DAY
     Route: 058
     Dates: start: 20240617, end: 20240617
  4. ELRANATAMAB [Suspect]
     Active Substance: ELRANATAMAB
     Route: 058
     Dates: end: 20240703
  5. CALONAL [Concomitant]
     Active Substance: ACETAMINOPHEN
     Dates: start: 20240610
  6. DECADRON [Concomitant]
     Active Substance: DEXAMETHASONE
     Dosage: 8 MG, 1X/DAY
     Dates: start: 20240608
  7. DECADRON [Concomitant]
     Active Substance: DEXAMETHASONE
     Dates: start: 20240610
  8. DIPHENHYDRAMINE [Concomitant]
     Active Substance: DIPHENHYDRAMINE
     Dates: start: 20240610
  9. SPIRONOLACTONE [Concomitant]
     Active Substance: SPIRONOLACTONE
     Indication: Cardiac failure
     Dosage: 25 MG, 1X/DAY
     Route: 048
     Dates: start: 20240605
  10. AROTINOLOL HYDROCHLORIDE [Concomitant]
     Active Substance: AROTINOLOL HYDROCHLORIDE
     Indication: Essential tremor
     Dosage: 15 MG, 3X/DAY
     Route: 048
     Dates: start: 20240605
  11. SULFAMETHOXAZOLE\TRIMETHOPRIM [Concomitant]
     Active Substance: SULFAMETHOXAZOLE\TRIMETHOPRIM
     Indication: Prophylaxis
     Dosage: 2 G, 1X/DAY
     Route: 048
     Dates: start: 20240605
  12. BELSOMRA [Concomitant]
     Active Substance: SUVOREXANT
     Indication: Insomnia
     Dosage: 15 MG, 1X/DAY
     Route: 048
     Dates: start: 20240605
  13. CALCIUM LACTATE [Concomitant]
     Active Substance: CALCIUM LACTATE
     Indication: Prophylaxis
     Dosage: 1 G, 2X/DAY
     Route: 048
     Dates: start: 20240605
  14. ELIQUIS [Concomitant]
     Active Substance: APIXABAN
     Indication: Atrial fibrillation
     Dosage: 10 MG, 2X/DAY
     Route: 048
     Dates: start: 20240609
  15. FEBUXOSTAT [Concomitant]
     Active Substance: FEBUXOSTAT
     Indication: Hyperuricaemia
     Route: 048
     Dates: start: 20240605
  16. FENTANYL [Concomitant]
     Active Substance: FENTANYL
     Indication: Cancer pain
     Dosage: 1 MG, 1X/DAY
     Route: 061
     Dates: start: 20240608
  17. FUROSEMIDE NIG [Concomitant]
     Indication: Cardiac failure
     Route: 048
     Dates: start: 20240605
  18. LAGNOS NF [Concomitant]
     Indication: Constipation
     Dosage: 36 G, 3X/DAY
     Route: 048
     Dates: start: 20240610
  19. MAGNESIUM OXIDE [Concomitant]
     Active Substance: MAGNESIUM OXIDE
     Indication: Constipation
     Dosage: 1500 MG, 3X/DAY
     Route: 048
     Dates: start: 20240610
  20. OXYCODONE HYDROCHLORIDE [Concomitant]
     Active Substance: OXYCODONE HYDROCHLORIDE
     Indication: Cancer pain
     Route: 048
     Dates: start: 20240608
  21. OXYCODONE HYDROCHLORIDE [Concomitant]
     Active Substance: OXYCODONE HYDROCHLORIDE
  22. PANTETHINE [Concomitant]
     Active Substance: PANTETHINE
     Indication: Constipation
     Dosage: 300 MG, 3X/DAY
     Route: 048
     Dates: start: 20240610
  23. RABEPRAZOLE SODIUM [Concomitant]
     Active Substance: RABEPRAZOLE SODIUM
     Indication: Prophylaxis against gastrointestinal ulcer
     Route: 048
     Dates: start: 20240605
  24. RISPERDAL [Concomitant]
     Active Substance: RISPERIDONE
     Indication: Insomnia
     Dosage: 1 MG, 1X/DAY
     Route: 048
     Dates: start: 20240605
  25. SAMSCA [Concomitant]
     Active Substance: TOLVAPTAN
     Indication: Cardiac failure
     Dosage: 15 MG, 1X/DAY
     Route: 048
     Dates: start: 20240605
  26. SYMPROIC [Concomitant]
     Active Substance: NALDEMEDINE TOSYLATE
     Indication: Constipation
     Dosage: 0.2 MG, 1X/DAY
     Route: 048
     Dates: start: 20240610
  27. SILODOSIN [Concomitant]
     Active Substance: SILODOSIN
     Indication: Benign prostatic hyperplasia
     Dosage: 4 MG, 1X/DAY
     Route: 048
     Dates: start: 20240605
  28. VALTREX [Concomitant]
     Active Substance: VALACYCLOVIR HYDROCHLORIDE
     Indication: Prophylaxis
     Dosage: 500 MG, 1X/DAY
     Route: 048
     Dates: start: 20240605
  29. ISOTONIC SODIUM CHLORIDE SOLUTION [Concomitant]
     Active Substance: SODIUM CHLORIDE
     Route: 042
     Dates: start: 20240609, end: 20240619
  30. LOXOPROFEN SODIUM [Concomitant]
     Active Substance: LOXOPROFEN SODIUM
     Indication: Cancer pain
     Route: 048
  31. INSULIN NOS [Concomitant]
     Active Substance: INSULIN NOS
     Indication: Type 2 diabetes mellitus

REACTIONS (2)
  - Bacterial sepsis [Fatal]
  - Cytokine release syndrome [Recovered/Resolved]

NARRATIVE: CASE EVENT DATE: 20240611
